FAERS Safety Report 6895712-4 (Version None)
Quarter: 2010Q3

REPORT INFORMATION
  Report Type: 
  Country: None (occurrence: None)
  Receive Date: 20100728
  Receipt Date: 20100716
  Transmission Date: 20110219
  Serious: Yes (Other)
  Sender: FDA-Public Use
  Company Number: DSU-2010-03450

PATIENT
  Age: 81 Year
  Sex: Female
  Weight: 52.1637 kg

DRUGS (2)
  1. BENICAR [Suspect]
     Indication: HYPERTENSION
     Dosage: 40 MG (40 MG, QD), PER ORAL
     Route: 048
     Dates: start: 20090701
  2. CARDIZEM (DILTIAZEM) (DILTIAZEM) [Concomitant]

REACTIONS (9)
  - ASTHENIA [None]
  - DRUG HYPERSENSITIVITY [None]
  - FLATULENCE [None]
  - HICCUPS [None]
  - NAUSEA [None]
  - OESOPHAGITIS ULCERATIVE [None]
  - PNEUMONIA [None]
  - PRODUCT FORMULATION ISSUE [None]
  - PRODUCT ODOUR ABNORMAL [None]
